FAERS Safety Report 16126613 (Version 2)
Quarter: 2019Q2

REPORT INFORMATION
  Report Type: Spontaneous
  Country: US (occurrence: US)
  Receive Date: 20190328
  Receipt Date: 20190430
  Transmission Date: 20190711
  Serious: No
  Sender: FDA-Public Use
  Company Number: US-BIOGEN-2017BI00346558

PATIENT
  Sex: Male

DRUGS (1)
  1. AVONEX [Suspect]
     Active Substance: INTERFERON BETA-1A
     Indication: MULTIPLE SCLEROSIS
     Route: 030
     Dates: start: 201210

REACTIONS (5)
  - Sinusitis [Not Recovered/Not Resolved]
  - Product dose omission [Unknown]
  - Nasal congestion [Unknown]
  - Malaise [Unknown]
  - Fatigue [Recovered/Resolved]
